FAERS Safety Report 6966333-X (Version None)
Quarter: 2010Q3

REPORT INFORMATION
  Report Type: 
  Country: None (occurrence: None)
  Receive Date: 20100903
  Receipt Date: 20100827
  Transmission Date: 20110219
  Serious: Yes (Hospitalization)
  Sender: FDA-Public Use
  Company Number: JP-ROCHE-686219

PATIENT
  Sex: Male
  Weight: 44 kg

DRUGS (10)
  1. AVASTIN [Suspect]
     Indication: RECTAL CANCER RECURRENT
     Route: 041
     Dates: start: 20100114, end: 20100114
  2. ELPLAT [Suspect]
     Indication: RECTAL CANCER RECURRENT
     Route: 041
     Dates: start: 20100114, end: 20100114
  3. CALCIUM LEVOFOLINATE [Suspect]
     Indication: RECTAL CANCER RECURRENT
     Route: 041
     Dates: start: 20100114, end: 20100114
  4. FLUOROURACIL [Suspect]
     Indication: RECTAL CANCER RECURRENT
     Dosage: ROUTE: INTRAVENOUS BOLUS
     Route: 042
     Dates: start: 20100114, end: 20100114
  5. FLUOROURACIL [Suspect]
     Dosage: ROUTE: INTRAVENOUS DRIP
     Route: 042
     Dates: start: 20100114, end: 20100116
  6. GRANISETRON HCL [Concomitant]
     Route: 042
     Dates: start: 20100114, end: 20100114
  7. PRIMPERAN TAB [Concomitant]
     Route: 042
     Dates: start: 20100115, end: 20100115
  8. OXYCONTIN [Concomitant]
     Route: 048
     Dates: start: 20100115
  9. LOXONIN [Concomitant]
     Route: 048
     Dates: start: 20100113
  10. MUCOSTA [Concomitant]
     Route: 048
     Dates: start: 20100113

REACTIONS (2)
  - NECROTISING FASCIITIS [None]
  - RECTAL PERFORATION [None]
